FAERS Safety Report 6246482-4 (Version None)
Quarter: 2009Q2

REPORT INFORMATION
  Report Type: 
  Country: None (occurrence: None)
  Receive Date: 20090626
  Receipt Date: 20090618
  Transmission Date: 20091009
  Serious: Yes (Other)
  Sender: FDA-Public Use
  Company Number: US-ROCHE-640040

PATIENT
  Age: 41 Year

DRUGS (14)
  1. GANCICLOVIR [Suspect]
     Route: 042
  2. SULFAMETHOXAZOLE AND TRIMETHOPRIM [Suspect]
     Indication: INFECTION PROPHYLAXIS
     Route: 065
  3. MYCOPHENOLATE MOFETIL [Suspect]
     Indication: PROPHYLAXIS AGAINST TRANSPLANT REJECTION
     Route: 065
  4. VALGANCICLOVIR HCL [Suspect]
     Route: 048
  5. TACROLIMUS [Suspect]
     Indication: PROPHYLAXIS AGAINST TRANSPLANT REJECTION
     Route: 065
  6. ANTI-THYMOCYTE GLOBULIN NOS [Suspect]
     Indication: PROPHYLAXIS AGAINST TRANSPLANT REJECTION
     Route: 065
  7. EVEROLIMUS [Suspect]
     Indication: PROPHYLAXIS AGAINST TRANSPLANT REJECTION
     Route: 065
  8. EVEROLIMUS [Suspect]
     Dosage: DOSE REDUCED
     Route: 065
  9. METHYLPREDNISOLONE [Suspect]
     Indication: PROPHYLAXIS AGAINST TRANSPLANT REJECTION
     Route: 065
  10. PREDNISOLONE [Suspect]
     Indication: PROPHYLAXIS AGAINST TRANSPLANT REJECTION
     Route: 065
  11. PREDNISOLONE [Suspect]
     Route: 065
  12. ALEMTUZUMAB [Suspect]
     Route: 065
  13. PIPERACILLIN SODIUM AND TAZOBACTAM SODIUM [Suspect]
     Indication: INFECTION PROPHYLAXIS
     Route: 065
  14. FLUCONAZOLE [Suspect]
     Indication: ANTIFUNGAL PROPHYLAXIS
     Route: 065

REACTIONS (10)
  - ALTERNARIA INFECTION [None]
  - CLOSTRIDIUM DIFFICILE COLITIS [None]
  - CYTOMEGALOVIRUS INFECTION [None]
  - HEADACHE [None]
  - HYPERTENSION [None]
  - METABOLIC DISORDER [None]
  - NEPHROPATHY TOXIC [None]
  - PAPILLOMA VIRAL INFECTION [None]
  - RENAL IMPAIRMENT [None]
  - TRANSPLANT REJECTION [None]
